FAERS Safety Report 8300224-7 (Version None)
Quarter: 2012Q2

REPORT INFORMATION
  Report Type: 
  Country: None (occurrence: None)
  Receive Date: 20120420
  Receipt Date: 20120417
  Transmission Date: 20120825
  Serious: Yes (Other)
  Sender: FDA-Public Use
  Company Number: US-PFIZER INC-2012095394

PATIENT
  Sex: Female
  Weight: 68.027 kg

DRUGS (5)
  1. GEODON [Suspect]
     Indication: ANXIETY
  2. PROZAC [Suspect]
     Indication: POSTPARTUM DEPRESSION
     Dosage: UNK
     Dates: start: 20040101
  3. ATIVAN [Concomitant]
     Indication: SLEEP DISORDER
     Dosage: UNK
  4. KLONOPIN [Concomitant]
     Indication: SLEEP DISORDER
     Dosage: UNK
  5. GEODON [Suspect]
     Indication: DEPRESSION
     Dosage: 60 MG, 1X/DAY
     Route: 048

REACTIONS (3)
  - PANIC ATTACK [None]
  - ANXIETY [None]
  - ABNORMAL WEIGHT GAIN [None]
